FAERS Safety Report 10846644 (Version 3)
Quarter: 2015Q1

REPORT INFORMATION
  Report Type: Spontaneous
  Country: JP (occurrence: JP)
  Receive Date: 20150220
  Receipt Date: 20150310
  Transmission Date: 20150721
  Serious: Yes (Life-Threatening, Other)
  Sender: FDA-Public Use
  Company Number: JP-GSKJP-JP2015JPN021856AA

PATIENT
  Age: 42 Year
  Sex: Female

DRUGS (1)
  1. ZINNAT [Suspect]
     Active Substance: CEFUROXIME AXETIL
     Indication: GINGIVITIS
     Dosage: 250 MG, TID
     Route: 048
     Dates: start: 20150217, end: 20150217

REACTIONS (7)
  - Sputum retention [Recovered/Resolved]
  - Pruritus [Recovered/Resolved]
  - Anaphylactic reaction [Recovered/Resolved]
  - Dyspnoea [Recovered/Resolved]
  - Generalised erythema [Recovering/Resolving]
  - Cough [Recovered/Resolved]
  - Vomiting [Recovered/Resolved]

NARRATIVE: CASE EVENT DATE: 20150217
